FAERS Safety Report 5532513-3 (Version None)
Quarter: 2007Q4

REPORT INFORMATION
  Report Type: 
  Country: None (occurrence: None)
  Receive Date: 20071203
  Receipt Date: 20071122
  Transmission Date: 20080405
  Serious: Yes (Other)
  Sender: FDA-Public Use
  Company Number: MY-PFIZER INC-2007098989

PATIENT
  Age: 14 Year

DRUGS (1)
  1. SULPERAZON [Suspect]
     Indication: SEPSIS
     Dosage: DAILY DOSE:1GRAM
     Route: 042

REACTIONS (1)
  - DEAFNESS [None]
